FAERS Safety Report 14682110 (Version 1)
Quarter: 2018Q1

REPORT INFORMATION
  Report Type: Spontaneous
  Country: US (occurrence: US)
  Receive Date: 20180326
  Receipt Date: 20180326
  Transmission Date: 20180509
  Serious: No
  Sender: FDA-Public Use
  Company Number: US-ELI_LILLY_AND_COMPANY-US201803010218

PATIENT
  Sex: Female

DRUGS (4)
  1. BASAGLAR [Suspect]
     Active Substance: INSULIN GLARGINE
     Indication: PRODUCT USED FOR UNKNOWN INDICATION
     Dosage: 57 U, BID
     Route: 065
     Dates: start: 201703
  2. BASAGLAR [Suspect]
     Active Substance: INSULIN GLARGINE
     Dosage: 57 U, BID
     Route: 005
  3. GLIPIZIDE. [Concomitant]
     Active Substance: GLIPIZIDE
  4. BASAGLAR [Suspect]
     Active Substance: INSULIN GLARGINE
     Dosage: 57 U, BID
     Route: 005

REACTIONS (5)
  - Inappropriate schedule of drug administration [Unknown]
  - Blood glucose decreased [Unknown]
  - Weight increased [Unknown]
  - Drug dose omission [Unknown]
  - Injury associated with device [Unknown]

NARRATIVE: CASE EVENT DATE: 201802
